FAERS Safety Report 15618530 (Version 3)
Quarter: 2018Q4

REPORT INFORMATION
  Report Type: Report from Study
  Country: US (occurrence: US)
  Receive Date: 20181114
  Receipt Date: 20181204
  Transmission Date: 20190205
  Serious: Yes (Other)
  Sender: FDA-Public Use
  Company Number: US-B.I. PHARMACEUTICALS,INC./RIDGEFIELD-2018-BI-054006

PATIENT
  Sex: Male

DRUGS (1)
  1. GILOTRIF [Suspect]
     Active Substance: AFATINIB
     Indication: NON-SMALL CELL LUNG CANCER METASTATIC
     Dosage: 1 TABLET ONCE A DAY;  FORM STRENGTH: 40 MG; ?ACTION(S) TAKEN WITH PRODUCT: DOSE NOT CHANGED
     Route: 048
     Dates: start: 20180724, end: 20181028

REACTIONS (5)
  - Urine flow decreased [Unknown]
  - Urinary incontinence [Unknown]
  - Cough [Unknown]
  - Nausea [Unknown]
  - Bowel movement irregularity [Unknown]
